FAERS Safety Report 8152340-0 (Version None)
Quarter: 2012Q1

REPORT INFORMATION
  Report Type: 
  Country: None (occurrence: None)
  Receive Date: 20120221
  Receipt Date: 20120208
  Transmission Date: 20120608
  Serious: Yes (Other)
  Sender: FDA-Public Use
  Company Number: CA-JNJFOC-20120205732

PATIENT
  Sex: Female
  Weight: 60 kg

DRUGS (8)
  1. REMICADE [Suspect]
     Indication: RHEUMATOID ARTHRITIS
     Route: 042
  2. RAMIPRIL [Concomitant]
     Route: 065
  3. FOLIC ACID [Concomitant]
     Route: 065
  4. LEVOTHYROXINE SODIUM [Concomitant]
     Route: 065
  5. METHOTREXATE [Concomitant]
     Route: 065
  6. PERIOTE [Concomitant]
     Route: 065
  7. REMICADE [Suspect]
     Route: 042
     Dates: start: 20111020
  8. REMICADE [Suspect]
     Route: 042
     Dates: start: 20111214

REACTIONS (6)
  - FATIGUE [None]
  - JOINT SWELLING [None]
  - HEADACHE [None]
  - PAIN OF SKIN [None]
  - ERYTHEMA [None]
  - ABDOMINAL PAIN UPPER [None]
